FAERS Safety Report 10050746 (Version 1)
Quarter: 2014Q2

REPORT INFORMATION
  Report Type: Spontaneous
  Country: US (occurrence: US)
  Receive Date: 20140401
  Receipt Date: 20140401
  Transmission Date: 20141212
  Serious: No
  Sender: FDA-Public Use
  Company Number: US-ASTRAZENECA-2013SE67879

PATIENT
  Age: 72 Year
  Sex: Female
  Weight: 72.6 kg

DRUGS (4)
  1. NEXIUM [Suspect]
     Indication: GASTROOESOPHAGEAL REFLUX DISEASE
     Route: 048
     Dates: start: 201308
  2. OMEPRAZOLE [Suspect]
     Indication: GASTROOESOPHAGEAL REFLUX DISEASE
     Route: 048
     Dates: start: 201308, end: 201308
  3. ANTACIDS [Concomitant]
     Indication: DYSPEPSIA
     Dosage: PRN
     Route: 048
  4. CARAFATE [Concomitant]
     Indication: OESOPHAGEAL ULCER
     Route: 048
     Dates: start: 20130904

REACTIONS (5)
  - Urine odour abnormal [Not Recovered/Not Resolved]
  - Dyspepsia [Not Recovered/Not Resolved]
  - Dysgeusia [Not Recovered/Not Resolved]
  - Drug effect incomplete [Unknown]
  - Drug ineffective [Unknown]
